FAERS Safety Report 18297723 (Version 1)
Quarter: 2020Q3

REPORT INFORMATION
  Report Type: Spontaneous
  Country: FR (occurrence: FR)
  Receive Date: 20200922
  Receipt Date: 20200922
  Transmission Date: 20201103
  Serious: Yes (Other)
  Sender: FDA-Public Use
  Company Number: FR-MYLANLABS-2020M1079619

PATIENT
  Sex: Female

DRUGS (1)
  1. MACROGOL 4000 MYLAN 10 G, POUDRE POUR SOLUTION BUVABLE EN SACHET?DOSE [Suspect]
     Active Substance: POLYETHYLENE GLYCOL 4000
     Indication: PRODUCT USED FOR UNKNOWN INDICATION
     Dosage: UNK (1?2 SACHETS), QD, 4000

REACTIONS (2)
  - Anorectal discomfort [Recovered/Resolved]
  - Haematochezia [Recovered/Resolved]
